FAERS Safety Report 7040943-6 (Version None)
Quarter: 2010Q4

REPORT INFORMATION
  Report Type: 
  Country: None (occurrence: None)
  Receive Date: 20101006
  Receipt Date: 20100924
  Transmission Date: 20110411
  Serious: Yes (Hospitalization)
  Sender: FDA-Public Use
  Company Number: WAES 1009USA04972

PATIENT
  Age: 75 Year
  Sex: Female

DRUGS (2)
  1. CAP VORINOSTAT UNK [Suspect]
     Indication: MULTIPLE MYELOMA
     Dosage: PO
     Route: 048
  2. BORTEZOMIB UNK [Suspect]
     Indication: MULTIPLE MYELOMA

REACTIONS (1)
  - DELIRIUM [None]
